FAERS Safety Report 18599294 (Version 10)
Quarter: 2023Q2

REPORT INFORMATION
  Report Type: Report from Study
  Country: US (occurrence: US)
  Receive Date: 20201210
  Receipt Date: 20230608
  Transmission Date: 20230722
  Serious: Yes (Hospitalization)
  Sender: FDA-Public Use
  Company Number: NVSC2020US321641

PATIENT
  Age: 10 Year
  Sex: Female
  Weight: 41.7 kg

DRUGS (3)
  1. ILARIS [Suspect]
     Active Substance: CANAKINUMAB
     Indication: PFAPA syndrome
     Dosage: 150 MG, EVERY 4 WEEKS
     Route: 058
     Dates: start: 20190817, end: 20201107
  2. ILARIS [Suspect]
     Active Substance: CANAKINUMAB
     Dosage: 150 MG, EVERY 4 WEEKS
     Route: 058
     Dates: start: 20190817, end: 20201107
  3. ILARIS [Suspect]
     Active Substance: CANAKINUMAB
     Dosage: 150 MG, EVERY 4 WEEKS
     Route: 058
     Dates: start: 20191010

REACTIONS (9)
  - Large intestine infection [Recovered/Resolved]
  - Abdominal migraine [Unknown]
  - White blood cell count decreased [Unknown]
  - Serum ferritin decreased [Unknown]
  - Dizziness [Unknown]
  - Fatigue [Not Recovered/Not Resolved]
  - COVID-19 [Recovered/Resolved]
  - Headache [Unknown]
  - Product use in unapproved indication [Unknown]

NARRATIVE: CASE EVENT DATE: 20201128
